FAERS Safety Report 6232506-7 (Version None)
Quarter: 2009Q2

REPORT INFORMATION
  Report Type: 
  Country: None (occurrence: None)
  Receive Date: 20090617
  Receipt Date: 20090609
  Transmission Date: 20091009
  Serious: Yes (Other)
  Sender: FDA-Public Use
  Company Number: ES-BAYER-200922940GPV

PATIENT
  Age: 65 Year
  Sex: Male

DRUGS (2)
  1. ACTIRA [Suspect]
     Indication: SINUSITIS
     Route: 065
     Dates: start: 20070101
  2. CORTICOIDS [Concomitant]
     Indication: SINUSITIS
     Route: 065

REACTIONS (1)
  - DEEP VEIN THROMBOSIS [None]
